FAERS Safety Report 8776305 (Version 2)
Quarter: 2012Q4

REPORT INFORMATION
  Report Type: 
  Country: US (occurrence: US)
  Receive Date: 20120910
  Receipt Date: 20121228
  Transmission Date: 20130627
  Serious: Yes (Hospitalization, Other)
  Sender: FDA-Public Use
  Company Number: US-JNJFOC-20120901308

PATIENT
  Age: 45 Year
  Sex: Female

DRUGS (2)
  1. TYLENOL EXTRA STRENGTH [Suspect]
     Route: 048
  2. TYLENOL EXTRA STRENGTH [Suspect]
     Indication: TOOTHACHE
     Route: 048
     Dates: start: 200808

REACTIONS (7)
  - Acute hepatic failure [Recovering/Resolving]
  - Renal failure acute [Unknown]
  - Ischaemic hepatitis [Recovering/Resolving]
  - Hepatotoxicity [Recovering/Resolving]
  - Accidental overdose [Unknown]
  - Dehydration [Recovering/Resolving]
  - Hypotension [Recovering/Resolving]
